FAERS Safety Report 4514248-9 (Version None)
Quarter: 2004Q4

REPORT INFORMATION
  Report Type: 
  Country: None (occurrence: None)
  Receive Date: 20040928
  Receipt Date: 20040624
  Transmission Date: 20050328
  Serious: No
  Sender: FDA-Public Use
  Company Number: 04P-163-0264831-00

PATIENT
  Age: 41 Year
  Sex: Female
  Weight: 63.5036 kg

DRUGS (9)
  1. HUMIRA [Suspect]
     Indication: RHEUMATOID ARTHRITIS
     Dosage: 40 MG, 1IN 2 WK, SUBCUTANEOUS
     Route: 058
     Dates: start: 20040301
  2. METHOTREXATE SODIUM [Concomitant]
  3. PREDNISONE [Concomitant]
  4. LEVOTHYROXINE SODIUM [Concomitant]
  5. BUCINDOLOL HYDROCHLORIDE [Concomitant]
  6. EFFEXOR [Concomitant]
  7. FOLIC ACID [Concomitant]
  8. VICODIN [Concomitant]
  9. NORGESTIMATE AND ETHINYL ESTRADIOL [Concomitant]

REACTIONS (1)
  - INJECTION SITE URTICARIA [None]
